FAERS Safety Report 24010235 (Version 1)
Quarter: 2024Q2

REPORT INFORMATION
  Report Type: Spontaneous
  Country: US (occurrence: US)
  Receive Date: 20240625
  Receipt Date: 20240625
  Transmission Date: 20240717
  Serious: Yes (Other)
  Sender: FDA-Public Use
  Company Number: US-AMGEN-USASP2024122982

PATIENT
  Age: 61 Year
  Sex: Male

DRUGS (3)
  1. INFLIXIMAB [Suspect]
     Active Substance: INFLIXIMAB
     Indication: Ankylosing spondylitis
     Dosage: UNK
     Route: 065
  2. INFLIXIMAB [Suspect]
     Active Substance: INFLIXIMAB
     Indication: Psoriatic arthropathy
  3. SIROLIMUS [Concomitant]
     Active Substance: SIROLIMUS
     Indication: Lymphangioma
     Dosage: UNK
     Route: 065

REACTIONS (4)
  - Respiratory failure [Unknown]
  - Pneumonia [Unknown]
  - Lymphangioma [Unknown]
  - Campylobacter infection [Unknown]
